FAERS Safety Report 4458264-4 (Version None)
Quarter: 2004Q3

REPORT INFORMATION
  Report Type: 
  Country: None (occurrence: None)
  Receive Date: 20040924
  Receipt Date: 20040916
  Transmission Date: 20050211
  Serious: Yes (Death)
  Sender: FDA-Public Use
  Company Number: US-JNJFOC-20040905922

PATIENT
  Age: 19 Year
  Sex: Male

DRUGS (5)
  1. DURAGESIC [Suspect]
     Indication: INTENTIONAL MISUSE
     Route: 049
     Dates: end: 20040703
  2. PERCOCET [Suspect]
     Route: 065
     Dates: end: 20040703
  3. PERCOCET [Suspect]
     Indication: INTENTIONAL MISUSE
     Route: 065
     Dates: end: 20040703
  4. XANAX [Suspect]
     Indication: INTENTIONAL MISUSE
     Route: 065
  5. MDMA [Suspect]
     Indication: INTENTIONAL MISUSE
     Route: 065

REACTIONS (3)
  - INTENTIONAL MISUSE [None]
  - MULTIPLE DRUG OVERDOSE [None]
  - SELF-MEDICATION [None]
